FAERS Safety Report 4666494-1 (Version None)
Quarter: 2005Q2

REPORT INFORMATION
  Report Type: 
  Country: None (occurrence: None)
  Receive Date: 20050518
  Receipt Date: 20050502
  Transmission Date: 20051028
  Serious: Yes (Other)
  Sender: FDA-Public Use
  Company Number: MAG-2005-0000357

PATIENT
  Age: 79 Year
  Sex: Male

DRUGS (4)
  1. POVIDONE IODINE [Suspect]
     Indication: ANTIBACTERIAL PROPHYLAXIS
     Dosage: SINGLE, TOPICAL
     Route: 061
  2. HIBITANE [Concomitant]
  3. XYLOCAINE [Concomitant]
  4. MARCAINE [Concomitant]

REACTIONS (4)
  - ANAPHYLACTIC REACTION [None]
  - ERYTHEMA [None]
  - RASH [None]
  - SKIN TEST POSITIVE [None]
